FAERS Safety Report 4365114-3 (Version None)
Quarter: 2004Q2

REPORT INFORMATION
  Report Type: 
  Country: None (occurrence: None)
  Receive Date: 20040520
  Receipt Date: 20040507
  Transmission Date: 20050107
  Serious: Yes (Hospitalization)
  Sender: FDA-Public Use
  Company Number: HQWYE765207MAY04

PATIENT
  Age: 58 Year
  Sex: Female

DRUGS (4)
  1. PREMELLE (CONJUGATED ESTROGENS/MEDROXYPROGESTERONE ACETATE, TABLET, UN [Suspect]
     Indication: HORMONE REPLACEMENT THERAPY
     Route: 048
     Dates: start: 20030522, end: 20040414
  2. CALCIUM (CALCIUM) [Concomitant]
  3. RISEDRONATE (RISEDRONATE) [Concomitant]
  4. SPIRONOLACTONE (SPIROLACTONE) [Concomitant]

REACTIONS (2)
  - CEREBROVASCULAR ARTERIOVENOUS MALFORMATION [None]
  - METASTASES TO LUNG [None]
